FAERS Safety Report 15760713 (Version 1)
Quarter: 2018Q4

REPORT INFORMATION
  Report Type: Spontaneous
  Country: US (occurrence: US)
  Receive Date: 20181226
  Receipt Date: 20181226
  Transmission Date: 20190205
  Serious: No
  Sender: FDA-Public Use
  Company Number: US-PFIZER INC-2017549943

PATIENT
  Age: 62 Year
  Sex: Female

DRUGS (2)
  1. GENOTROPIN [Suspect]
     Active Substance: SOMATROPIN
     Dosage: 0.8 MG, DAILY
  2. GENOTROPIN [Suspect]
     Active Substance: SOMATROPIN
     Dosage: 0.5 - 0.8 MG
     Dates: start: 201106

REACTIONS (11)
  - Blood thyroid stimulating hormone decreased [Unknown]
  - Thyroxine free increased [Unknown]
  - Aspartate aminotransferase increased [Unknown]
  - Blood glucose increased [Unknown]
  - Tri-iodothyronine free increased [Unknown]
  - Blood calcium increased [Unknown]
  - Blood thyroid stimulating hormone increased [Unknown]
  - Alanine aminotransferase increased [Unknown]
  - Blood urea nitrogen/creatinine ratio decreased [Unknown]
  - Blood urea decreased [Unknown]
  - Blood alkaline phosphatase increased [Unknown]
